FAERS Safety Report 5350433-4 (Version None)
Quarter: 2007Q2

REPORT INFORMATION
  Report Type: 
  Country: None (occurrence: None)
  Receive Date: 20070605
  Receipt Date: 20070605
  Transmission Date: 20071010
  Serious: Yes (Hospitalization)
  Sender: FDA-Public Use
  Company Number: None

PATIENT
  Age: 65 Year
  Sex: Male

DRUGS (2)
  1. WARFARIN SODIUM [Suspect]
     Indication: STENT PLACEMENT
     Dosage: PO
     Route: 048
     Dates: start: 20070504, end: 20070520
  2. CLOPIDOGREL [Suspect]
     Indication: STENT PLACEMENT
     Dosage: 75MG EVERY DAY PO
     Route: 048

REACTIONS (3)
  - ANAEMIA [None]
  - GASTRIC HAEMORRHAGE [None]
  - INTERNATIONAL NORMALISED RATIO [None]
